FAERS Safety Report 10044528 (Version 1)
Quarter: 2014Q1

REPORT INFORMATION
  Report Type: Spontaneous
  Country: FR (occurrence: FR)
  Receive Date: 20140328
  Receipt Date: 20140328
  Transmission Date: 20141002
  Serious: Yes (Life-Threatening, Hospitalization)
  Sender: FDA-Public Use
  Company Number: FR-B.I. PHARMACEUTICALS,INC./RIDGEFIELD-2014-BI-12852FF

PATIENT
  Age: 80 Year
  Sex: Male

DRUGS (5)
  1. PRADAXA [Suspect]
     Indication: VENTRICULAR ARRHYTHMIA
     Route: 048
  2. LASILIX 40MG [Concomitant]
     Route: 065
  3. RAMIPRIL [Concomitant]
     Route: 065
  4. CARDENSIEL 5MG [Concomitant]
     Route: 065
  5. GALVUS 50MG [Concomitant]
     Route: 065

REACTIONS (4)
  - Shock haemorrhagic [Not Recovered/Not Resolved]
  - Haematemesis [Not Recovered/Not Resolved]
  - Rectal haemorrhage [Not Recovered/Not Resolved]
  - Overdose [Not Recovered/Not Resolved]
